FAERS Safety Report 7780299-4 (Version None)
Quarter: 2011Q3

REPORT INFORMATION
  Report Type: 
  Country: None (occurrence: None)
  Receive Date: 20110927
  Receipt Date: 20110919
  Transmission Date: 20111222
  Serious: Yes (Other)
  Sender: FDA-Public Use
  Company Number: US-AMGEN-USASP2011048234

PATIENT
  Age: 61 Year
  Sex: Male

DRUGS (1)
  1. ENBREL [Suspect]
     Indication: PSORIASIS
     Dosage: 50 MG, QWK
     Dates: start: 20110815

REACTIONS (5)
  - ALLERGIC SINUSITIS [None]
  - INJECTION SITE PAIN [None]
  - MIDDLE EAR EFFUSION [None]
  - INJECTION SITE HAEMORRHAGE [None]
  - HAEMOPTYSIS [None]
